FAERS Safety Report 23399248 (Version 1)
Quarter: 2024Q1

REPORT INFORMATION
  Report Type: Other
  Country: CN (occurrence: None)
  Receive Date: 20240113
  Receipt Date: 20240113
  Transmission Date: 20240409
  Serious: Yes (Hospitalization, Other)
  Sender: FDA-Public Use
  Company Number: CN-Nivagen-000093

PATIENT
  Age: 43 Year
  Sex: Female

DRUGS (2)
  1. DECITABINE [Suspect]
     Active Substance: DECITABINE
     Indication: Peripheral T-cell lymphoma unspecified
     Dosage: 25 MG IV D2-6
     Route: 042
     Dates: start: 20190129
  2. CAMRELIZUMAB [Suspect]
     Active Substance: CAMRELIZUMAB
     Indication: Peripheral T-cell lymphoma unspecified
     Dosage: 200 MG, EVERY 3 WEEKS
     Route: 042
     Dates: start: 20190129

REACTIONS (5)
  - Therapy partial responder [Unknown]
  - Myelosuppression [Unknown]
  - Pneumonia staphylococcal [Unknown]
  - Bacterial infection [Unknown]
  - Staphylococcal bacteraemia [Unknown]
